FAERS Safety Report 19330954 (Version 7)
Quarter: 2021Q4

REPORT INFORMATION
  Report Type: Report from Study
  Country: NL (occurrence: NL)
  Receive Date: 20210528
  Receipt Date: 20211007
  Transmission Date: 20220303
  Serious: Yes (Hospitalization)
  Sender: FDA-Public Use
  Company Number: NL-SA-SAC20210526000064

PATIENT

DRUGS (13)
  1. CEMIPLIMAB [Suspect]
     Active Substance: CEMIPLIMAB
     Indication: Bladder cancer
     Dosage: 3 MG/KG, Q3W
     Route: 042
  2. CEMIPLIMAB [Suspect]
     Active Substance: CEMIPLIMAB
     Dosage: 3 MG/KG, Q3W
     Route: 042
     Dates: start: 20210203, end: 20210203
  3. SAR-439459 [Suspect]
     Active Substance: SAR-439459
     Indication: Bladder cancer
     Dosage: UNK, Q3W
     Route: 042
  4. SAR-439459 [Suspect]
     Active Substance: SAR-439459
     Dosage: UNK, Q3W
     Route: 042
     Dates: start: 20210203, end: 20210203
  5. OMEPRAZOLE [Concomitant]
     Active Substance: OMEPRAZOLE
     Indication: Prophylaxis
     Dosage: TOTAL DAILY DOSE: 40 MG
     Route: 048
     Dates: start: 20210129
  6. ACETAMINOPHEN [Concomitant]
     Active Substance: ACETAMINOPHEN
     Indication: Product used for unknown indication
     Dosage: TOTAL DAILY DOSE: 4000 MG
     Route: 048
     Dates: start: 20201105
  7. POLYETHYLENE GLYCOLS [Concomitant]
     Active Substance: POLYETHYLENE GLYCOLS
     Indication: Product used for unknown indication
     Dosage: TOTAL DAILY DOSE: 1 SACHET
     Route: 048
     Dates: start: 20201105
  8. VASELINE CETOMACROGOL CREAM [Concomitant]
     Indication: Product used for unknown indication
     Dosage: TOTAL DAILY DOSE: 1 APPLICATION UNIT
     Route: 061
     Dates: start: 20210225
  9. CLEMASTINE [Concomitant]
     Active Substance: CLEMASTINE
     Indication: Product used for unknown indication
     Dosage: TOTAL DAILY DOSE: 1 MG
     Route: 048
     Dates: start: 20210408
  10. FLUTICASONE [Concomitant]
     Active Substance: FLUTICASONE
     Indication: Product used for unknown indication
     Dosage: TOTAL DAILY DOSE: 2 APPLICATION UNIT
     Route: 061
     Dates: start: 20210318
  11. PREDNISOLONE [Concomitant]
     Active Substance: PREDNISOLONE
     Indication: Prophylaxis
     Dosage: TOTAL DAILY DOSE: 30 MG
     Route: 048
     Dates: start: 20201103
  12. SULFAMETHOXAZOLE\TRIMETHOPRIM [Concomitant]
     Active Substance: SULFAMETHOXAZOLE\TRIMETHOPRIM
     Indication: Product used for unknown indication
     Dosage: TOTAL DAILY DOSE: 1920 MG
     Route: 048
     Dates: start: 20210420
  13. HYDROXYZINE [Concomitant]
     Active Substance: HYDROXYZINE HYDROCHLORIDE
     Indication: Product used for unknown indication
     Dosage: TOTAL DAILY DOSE: 25 MG
     Route: 048
     Dates: start: 20210424

REACTIONS (2)
  - Immune-mediated adrenal insufficiency [Recovered/Resolved]
  - Squamous cell carcinoma [Not Recovered/Not Resolved]

NARRATIVE: CASE EVENT DATE: 20210519
